FAERS Safety Report 5962975-9 (Version None)
Quarter: 2008Q4

REPORT INFORMATION
  Report Type: 
  Country: None (occurrence: None)
  Receive Date: 20081124
  Receipt Date: 20081113
  Transmission Date: 20090506
  Serious: Yes (Disabling)
  Sender: FDA-Public Use
  Company Number: JP-BRISTOL-MYERS SQUIBB COMPANY-14385678

PATIENT
  Age: 34 Year
  Sex: Male

DRUGS (9)
  1. ABILIFY [Suspect]
     Indication: SCHIZOPHRENIA
     Dosage: (15MG IN THE MORNING AND 6MG IN THE EVENING)
     Route: 048
     Dates: start: 20081016, end: 20081017
  2. RISPERDAL [Suspect]
     Indication: SCHIZOPHRENIA
     Dosage: STOPPED 15OCT08 AND RESTARTED 18OCT08 AT 6MG/D. DRUG CONTD
     Route: 048
  3. FLUNITRAZEPAM [Concomitant]
     Dosage: FORMULATION:TABLET
     Dates: start: 20081016, end: 20081018
  4. BIPERIDEN HYDROCHLORIDE TAB [Concomitant]
  5. ETIZOLAM [Concomitant]
  6. MAGNESIUM OXIDE [Concomitant]
  7. DIAZEPAM [Concomitant]
  8. SENNOSIDE [Concomitant]
  9. SODIUM PICOSULFATE [Concomitant]

REACTIONS (2)
  - DYSURIA [None]
  - HICCUPS [None]
